FAERS Safety Report 6025691-3 (Version None)
Quarter: 2008Q4

REPORT INFORMATION
  Report Type: 
  Country: None (occurrence: None)
  Receive Date: 20081231
  Receipt Date: 20081219
  Transmission Date: 20090506
  Serious: Yes (Hospitalization)
  Sender: FDA-Public Use
  Company Number: JP-AMGEN-US323659

PATIENT
  Sex: Female
  Weight: 55 kg

DRUGS (13)
  1. ENBREL [Suspect]
     Indication: RHEUMATOID ARTHRITIS
     Route: 058
     Dates: start: 20060420, end: 20081013
  2. RHEUMATREX [Suspect]
     Indication: RHEUMATOID ARTHRITIS
     Route: 048
     Dates: start: 20060725, end: 20081006
  3. ISONIAZID [Concomitant]
     Indication: PROPHYLAXIS
     Route: 048
     Dates: start: 20060419, end: 20070114
  4. PYDOXAL [Concomitant]
     Indication: PROPHYLAXIS
     Route: 048
     Dates: start: 20060419, end: 20070114
  5. HYPEN [Concomitant]
     Indication: RHEUMATOID ARTHRITIS
     Route: 048
     Dates: start: 20050822, end: 20080331
  6. BIOFERMIN [Concomitant]
     Route: 048
     Dates: start: 20070205, end: 20080810
  7. LIPITOR [Concomitant]
     Route: 048
  8. AMARYL [Concomitant]
     Route: 048
  9. MICARDIS [Concomitant]
     Route: 048
  10. ALLORINE [Concomitant]
     Route: 048
  11. CARDENALIN [Concomitant]
     Route: 048
  12. LASIX [Concomitant]
     Route: 048
  13. BASEN [Concomitant]
     Route: 048

REACTIONS (1)
  - LYMPH NODE TUBERCULOSIS [None]
